FAERS Safety Report 15664724 (Version 1)
Quarter: 2018Q4

REPORT INFORMATION
  Report Type: Spontaneous
  Country: US (occurrence: US)
  Receive Date: 20181128
  Receipt Date: 20181128
  Transmission Date: 20190205
  Serious: No
  Sender: FDA-Public Use
  Company Number: US-ASTRAZENECA-2018SF42735

PATIENT
  Age: 23806 Day
  Sex: Female
  Weight: 71.2 kg

DRUGS (2)
  1. PROAIR HFA [Suspect]
     Active Substance: ALBUTEROL SULFATE
     Route: 065
  2. SYMBICORT [Suspect]
     Active Substance: BUDESONIDE\FORMOTEROL FUMARATE DIHYDRATE
     Indication: ASTHMA
     Dosage: 160/4.5 MCG ONE INHALATION
     Route: 055

REACTIONS (6)
  - Device malfunction [Unknown]
  - Product dose omission [Not Recovered/Not Resolved]
  - Product dispensing error [Not Recovered/Not Resolved]
  - Product use issue [Unknown]
  - Intentional product misuse [Not Recovered/Not Resolved]
  - Dyspnoea [Not Recovered/Not Resolved]

NARRATIVE: CASE EVENT DATE: 20180603
